FAERS Safety Report 25932284 (Version 1)
Quarter: 2025Q4

REPORT INFORMATION
  Report Type: Spontaneous
  Country: US (occurrence: US)
  Receive Date: 20251016
  Receipt Date: 20251016
  Transmission Date: 20260118
  Serious: No
  Sender: MERCK SHARP & DOHME LLC
  Company Number: US-009507513-2333680

PATIENT
  Age: 60 Year
  Sex: Female
  Weight: 69.4 kg

DRUGS (42)
  1. SOTATERCEPT-CSRK [Suspect]
     Active Substance: SOTATERCEPT-CSRK
     Indication: Product used for unknown indication
  2. SOTATERCEPT-CSRK [Suspect]
     Active Substance: SOTATERCEPT-CSRK
  3. SOTATERCEPT-CSRK [Suspect]
     Active Substance: SOTATERCEPT-CSRK
  4. SOTATERCEPT-CSRK [Suspect]
     Active Substance: SOTATERCEPT-CSRK
  5. CALCIUM [Concomitant]
     Active Substance: CALCIUM
  6. FAMOTIDINE [Concomitant]
     Active Substance: FAMOTIDINE
  7. POTASSIUM CHLORIDE [Concomitant]
     Active Substance: POTASSIUM CHLORIDE
  8. ALBUTEROL SULFATE [Concomitant]
     Active Substance: ALBUTEROL SULFATE
  9. TRIAMCINOLONE ACETONIDE [Concomitant]
     Active Substance: TRIAMCINOLONE ACETONIDE
  10. VITAMIN D3 [Concomitant]
     Active Substance: CHOLECALCIFEROL
  11. OPSUMIT [Concomitant]
     Active Substance: MACITENTAN
  12. BACLOFEN [Concomitant]
     Active Substance: BACLOFEN
  13. MAGNESIUM [Concomitant]
     Active Substance: MAGNESIUM
  14. FLUTICASONE PROPIONATE [Concomitant]
     Active Substance: FLUTICASONE PROPIONATE
  15. VITAMIN K [Concomitant]
     Active Substance: PHYTONADIONE
  16. ALLOPURINOL [Concomitant]
     Active Substance: ALLOPURINOL
  17. AMMONIUM LACTATE [Concomitant]
     Active Substance: AMMONIUM LACTATE
  18. Gas X (simeticone) [Concomitant]
  19. FUROSEMIDE [Concomitant]
     Active Substance: FUROSEMIDE
  20. MIDODRINE HYDROCHLORIDE [Concomitant]
     Active Substance: MIDODRINE HYDROCHLORIDE
  21. IBANDRONATE SODIUM [Concomitant]
     Active Substance: IBANDRONATE SODIUM
  22. REMODULIN [Suspect]
     Active Substance: TREPROSTINIL
     Indication: Pulmonary arterial hypertension
     Dosage: 0.085 UG/KG CONTINUOUS, CONCENTRATION 2.5 MG/ML
     Route: 042
     Dates: start: 20240404
  23. PRAMOXINE HYDROCHLORIDE [Concomitant]
     Active Substance: PRAMOXINE HYDROCHLORIDE
  24. ELIQUIS [Concomitant]
     Active Substance: APIXABAN
  25. OXYGEN [Concomitant]
     Active Substance: OXYGEN
  26. BENADRYL [Concomitant]
     Active Substance: DIPHENHYDRAMINE HYDROCHLORIDE
  27. PREDNISONE [Concomitant]
     Active Substance: PREDNISONE
  28. FERROUS SULFATE [Concomitant]
     Active Substance: FERROUS SULFATE
  29. sodium chloride, water [Concomitant]
  30. CORLANOR [Concomitant]
     Active Substance: IVABRADINE HYDROCHLORIDE
  31. DIGOXIN [Concomitant]
     Active Substance: DIGOXIN
  32. ONDANSETRON [Concomitant]
     Active Substance: ONDANSETRON
  33. CARVEDILOL [Concomitant]
     Active Substance: CARVEDILOL
  34. Butalbital, Caffeine, Paracetamol [Concomitant]
  35. VITAMIN C [Concomitant]
     Active Substance: ASCORBIC ACID
  36. VITAMIN B COMPLEX [Concomitant]
     Active Substance: CYANOCOBALAMIN\DEXPANTHENOL\NIACINAMIDE\PYRIDOXINE HYDROCHLORIDE\RIBOFLAVIN 5^-PHOSPHATE SODIUM\THIA
  37. CYCLOBENZAPRINE HYDROCHLORIDE [Concomitant]
     Active Substance: CYCLOBENZAPRINE HYDROCHLORIDE
  38. ASPIRIN [Concomitant]
     Active Substance: ASPIRIN
  39. MUCINEX [Concomitant]
     Active Substance: GUAIFENESIN
  40. MYCOPHENOLATE MOFETIL [Concomitant]
     Active Substance: MYCOPHENOLATE MOFETIL
  41. ATORVASTATIN CALCIUM [Concomitant]
     Active Substance: ATORVASTATIN CALCIUM
  42. TRAMADOL HCL [Concomitant]
     Active Substance: TRAMADOL HYDROCHLORIDE

REACTIONS (1)
  - Inappropriate schedule of product administration [Unknown]

NARRATIVE: CASE EVENT DATE: 20250915
